FAERS Safety Report 5634870-6 (Version None)
Quarter: 2008Q1

REPORT INFORMATION
  Report Type: 
  Country: None (occurrence: None)
  Receive Date: 20080221
  Receipt Date: 20080221
  Transmission Date: 20080703
  Serious: Yes (Hospitalization)
  Sender: FDA-Public Use
  Company Number: None

PATIENT
  Age: 57 Year
  Sex: Male
  Weight: 72 kg

DRUGS (10)
  1. PANITUMUMAB [Suspect]
     Indication: SQUAMOUS CELL CARCINOMA
     Dosage: 2.5 MG/KG IV WKLY 7 WKS
     Route: 042
     Dates: start: 20071106, end: 20071216
  2. CARBOPLATIN [Suspect]
     Dosage: 105 AUC
  3. PACLITAXEL [Suspect]
     Dosage: 30MG/M2
  4. RADIATION [Suspect]
  5. ATIVAN [Concomitant]
  6. CELEXA [Concomitant]
  7. OXYCODONE HCL [Concomitant]
  8. PRILOSEC [Concomitant]
  9. REGLAN [Concomitant]
  10. ROBITUSSIN [Concomitant]

REACTIONS (4)
  - ASPIRATION [None]
  - PAIN [None]
  - PLEURAL EFFUSION [None]
  - PNEUMONIA STREPTOCOCCAL [None]
